FAERS Safety Report 13628353 (Version 4)
Quarter: 2017Q3

REPORT INFORMATION
  Report Type: Report from Study
  Country: US (occurrence: US)
  Receive Date: 20170607
  Receipt Date: 20170831
  Transmission Date: 20171127
  Serious: Yes (Hospitalization)
  Sender: FDA-Public Use
  Company Number: US-JNJFOC-20170602143

PATIENT
  Age: 22 Year
  Sex: Female
  Weight: 113 kg

DRUGS (1)
  1. REMICADE [Suspect]
     Active Substance: INFLIXIMAB
     Indication: INFLAMMATORY BOWEL DISEASE
     Route: 042
     Dates: start: 20170517, end: 20170524

REACTIONS (2)
  - Abdominal abscess [Recovered/Resolved with Sequelae]
  - Gastrointestinal fistula [Recovered/Resolved with Sequelae]

NARRATIVE: CASE EVENT DATE: 20170531
